FAERS Safety Report 13512505 (Version 3)
Quarter: 2017Q4

REPORT INFORMATION
  Report Type: Report from Study
  Country: US (occurrence: US)
  Receive Date: 20170504
  Receipt Date: 20171228
  Transmission Date: 20180320
  Serious: No
  Sender: FDA-Public Use
  Company Number: US-ALEXION PHARMACEUTICALS INC.-A201704577

PATIENT
  Sex: Male

DRUGS (2)
  1. SOLIRIS [Suspect]
     Active Substance: ECULIZUMAB
     Indication: PAROXYSMAL NOCTURNAL HAEMOGLOBINURIA
     Dosage: UNK
     Route: 042
  2. SOLIRIS [Suspect]
     Active Substance: ECULIZUMAB
     Dosage: UNK
     Route: 065

REACTIONS (4)
  - Platelet count decreased [Unknown]
  - Neutrophil count abnormal [Unknown]
  - Haemoglobin abnormal [Unknown]
  - White blood cell count decreased [Unknown]
